FAERS Safety Report 6341832-2 (Version None)
Quarter: 2009Q3

REPORT INFORMATION
  Report Type: 
  Country: None (occurrence: None)
  Receive Date: 20090902
  Receipt Date: 20090604
  Transmission Date: 20100115
  Serious: Yes (Hospitalization)
  Sender: FDA-Public Use
  Company Number: 2009S1000286

PATIENT
  Sex: Male

DRUGS (2)
  1. VENLAFAXINE HCL EXTENDED-RELEASE [Suspect]
     Indication: DEPRESSION
     Dosage: QD; PO
     Route: 048
     Dates: start: 20090101
  2. HERBAL SUPPLEMENT [Concomitant]

REACTIONS (1)
  - RECTAL HAEMORRHAGE [None]
